FAERS Safety Report 10411815 (Version 1)
Quarter: 2014Q2

REPORT INFORMATION
  Report Type: Spontaneous
  Country: US (occurrence: None)
  Receive Date: 20140604
  Receipt Date: 20140604
  Transmission Date: 20141212
  Serious: Yes (Disabling)
  Sender: FDA-Public Use
  Company Number: 163-POMAL-14042033

PATIENT
  Age: 54 Year
  Sex: Female

DRUGS (8)
  1. POMALYST [Suspect]
     Indication: PLASMA CELL MYELOMA
     Dosage: Q21D
     Route: 048
     Dates: start: 20140218
  2. VELCADE (BORTEZOMIB) [Concomitant]
  3. ACYCLOVIR (ACICLOVIR) [Concomitant]
  4. COUMADIN (WARFARIN SODIUM) [Concomitant]
  5. DEXAMETHASONE (DEXAMETHASONE) [Concomitant]
  6. ASA (ACETYLSALICYLIC ACID) [Concomitant]
  7. BACTRIM (BACTRIM) [Concomitant]
  8. PHOSPHORUS (PHOSPHORUS) [Concomitant]

REACTIONS (1)
  - Neuropathy peripheral [None]
